FAERS Safety Report 10879497 (Version 1)
Quarter: 2015Q1

REPORT INFORMATION
  Report Type: Spontaneous
  Country: US (occurrence: None)
  Receive Date: 20150224
  Receipt Date: 20150224
  Transmission Date: 20150721
  Serious: Yes (Hospitalization)
  Sender: FDA-Public Use
  Company Number: None

PATIENT
  Age: 65 Year
  Sex: Male
  Weight: 75.02 kg

DRUGS (2)
  1. CISPLATIN. [Suspect]
     Active Substance: CISPLATIN
     Dates: start: 20150202
  2. ETOPOSIDE (VP 16) [Suspect]
     Active Substance: ETOPOSIDE
     Dates: start: 20150204

REACTIONS (10)
  - Loss of consciousness [None]
  - Haematochezia [None]
  - Nausea [None]
  - Haemoglobin decreased [None]
  - Haemorrhage [None]
  - Haematemesis [None]
  - Hypotension [None]
  - Abdominal pain [None]
  - Abdominal pain upper [None]
  - Vomiting [None]

NARRATIVE: CASE EVENT DATE: 20150217
